FAERS Safety Report 6330234-0 (Version None)
Quarter: 2009Q3

REPORT INFORMATION
  Report Type: 
  Country: None (occurrence: None)
  Receive Date: 20090826
  Receipt Date: 20090826
  Transmission Date: 20100115
  Serious: Yes (Hospitalization)
  Sender: FDA-Public Use
  Company Number: None

PATIENT
  Age: 65 Year
  Sex: Male

DRUGS (8)
  1. HYDRALAZINE HCL [Suspect]
     Indication: HYPERTENSION
     Dosage: 50MG THREE TIMES DAILY PO
     Route: 048
     Dates: start: 20080701, end: 20080723
  2. FUROSEMIDE [Concomitant]
  3. ESOMEPRAZOLE [Concomitant]
  4. NYSTATIN [Concomitant]
  5. AMLODIPINE [Concomitant]
  6. LABETALOL HCL [Concomitant]
  7. INSULIN [Concomitant]
  8. ACETAMINOPHEN AND HYDROCODONE BITARTRATE [Concomitant]

REACTIONS (8)
  - BRONCHOMALACIA [None]
  - CARDIAC FAILURE CONGESTIVE [None]
  - GASTROINTESTINAL GANGRENE [None]
  - INTESTINAL PERFORATION [None]
  - INTUSSUSCEPTION [None]
  - PRODUCTIVE COUGH [None]
  - PULMONARY OEDEMA [None]
  - RENAL FAILURE ACUTE [None]
